FAERS Safety Report 12218560 (Version 1)
Quarter: 2016Q1

REPORT INFORMATION
  Report Type: Spontaneous
  Country: US (occurrence: US)
  Receive Date: 20160329
  Receipt Date: 20160329
  Transmission Date: 20160526
  Serious: No
  Sender: FDA-Public Use
  Company Number: US-BAUSCH-BL-2015-020858

PATIENT

DRUGS (2)
  1. ACCUTANE [Suspect]
     Active Substance: ISOTRETINOIN
     Indication: SEBORRHOEIC DERMATITIS
  2. RETIN-A [Suspect]
     Active Substance: TRETINOIN
     Indication: SEBORRHOEIC DERMATITIS

REACTIONS (2)
  - Off label use [Unknown]
  - Photosensitivity reaction [Unknown]
